FAERS Safety Report 19847381 (Version 1)
Quarter: 2021Q3

REPORT INFORMATION
  Report Type: Spontaneous
  Country: CA (occurrence: CA)
  Receive Date: 20210917
  Receipt Date: 20210917
  Transmission Date: 20211014
  Serious: Yes (Death, Life-Threatening, Hospitalization, Other)
  Sender: FDA-Public Use
  Company Number: CA-TEVA-2021-CA-1952729

PATIENT
  Age: 6 Day

DRUGS (12)
  1. TOBRAMYCIN. [Suspect]
     Active Substance: TOBRAMYCIN
     Indication: SEPTIC SHOCK
     Route: 065
  2. AMPICILLIN [Suspect]
     Active Substance: AMPICILLIN
     Indication: ANTIBIOTIC PROPHYLAXIS
  3. PIPERACILLIN AND TAZOBACTAM [Suspect]
     Active Substance: PIPERACILLIN SODIUM\TAZOBACTAM SODIUM
     Indication: SEPTIC SHOCK
     Route: 065
  4. MEROPENEM. [Suspect]
     Active Substance: MEROPENEM
     Indication: SEPTIC SHOCK
     Route: 065
  5. DEXAMETHASONE. [Concomitant]
     Active Substance: DEXAMETHASONE
     Indication: CHOLESTASIS
     Route: 065
  6. AMPICILLIN [Suspect]
     Active Substance: AMPICILLIN
     Indication: SEPTIC SHOCK
     Route: 042
  7. SULFAMETHOXAZOLE W/TRIMETHOPRIM [Suspect]
     Active Substance: SULFAMETHOXAZOLE\TRIMETHOPRIM
     Indication: SEPTIC SHOCK
     Route: 065
  8. TOBRAMYCIN. [Suspect]
     Active Substance: TOBRAMYCIN
     Indication: ANTIBIOTIC PROPHYLAXIS
  9. AMPHOTERICIN B. [Suspect]
     Active Substance: AMPHOTERICIN B
     Indication: SEPTIC SHOCK
     Route: 065
  10. JAMP?VANCOMYCIN [Suspect]
     Active Substance: VANCOMYCIN HYDROCHLORIDE
     Indication: SEPTIC SHOCK
     Route: 065
  11. DEXAMETHASONE. [Concomitant]
     Active Substance: DEXAMETHASONE
     Indication: BRONCHOPULMONARY DYSPLASIA
  12. FLUCONAZOLE. [Suspect]
     Active Substance: FLUCONAZOLE
     Indication: SEPTIC SHOCK
     Route: 065

REACTIONS (1)
  - Drug ineffective [Fatal]
